FAERS Safety Report 6386935-1 (Version None)
Quarter: 2009Q4

REPORT INFORMATION
  Report Type: 
  Country: None (occurrence: None)
  Receive Date: 20091002
  Receipt Date: 20090928
  Transmission Date: 20100525
  Serious: Yes (Hospitalization)
  Sender: FDA-Public Use
  Company Number: US-GILEAD-2009-0024060

PATIENT
  Sex: Female
  Weight: 100.79 kg

DRUGS (11)
  1. LETAIRIS [Suspect]
     Indication: PULMONARY ARTERIAL HYPERTENSION
     Route: 048
     Dates: start: 20090512
  2. REVATIO [Concomitant]
  3. METOPROLOL [Concomitant]
  4. LOTREL [Concomitant]
  5. LIPITOR [Concomitant]
  6. BUMEX [Concomitant]
  7. ASPIRIN [Concomitant]
  8. PROTONIX [Concomitant]
  9. DARVOCET [Concomitant]
  10. OXYGEN [Concomitant]
  11. AMITRIPTYLINE [Concomitant]

REACTIONS (1)
  - RIGHT VENTRICULAR FAILURE [None]
